FAERS Safety Report 6753330-2 (Version None)
Quarter: 2010Q2

REPORT INFORMATION
  Report Type: 
  Country: None (occurrence: None)
  Receive Date: 20100603
  Receipt Date: 20100521
  Transmission Date: 20101027
  Serious: Yes (Hospitalization)
  Sender: FDA-Public Use
  Company Number: ES-ELI_LILLY_AND_COMPANY-ES201005006720

PATIENT
  Sex: Female
  Weight: 63 kg

DRUGS (7)
  1. FORTEO [Suspect]
     Indication: OSTEOPOROSIS
     Dosage: 20 UG, DAILY (1/D)
     Route: 058
     Dates: start: 20100421
  2. GABAPENTINA [Concomitant]
     Indication: PAIN
     Dosage: UNK, 2/D
     Route: 048
  3. HYDROMORPHONE HCL [Concomitant]
     Indication: PAIN
     Dosage: 4 MG, DAILY (1/D)
  4. INDAPAMIDA [Concomitant]
     Indication: HYPERTENSION
     Dosage: 1.5 MG, DAILY (1/D)
     Route: 048
  5. MYOLASTAM [Concomitant]
     Indication: MUSCLE RELAXANT THERAPY
     Dosage: 50 MG, DAILY (1/D)
     Route: 048
  6. LEXATIN [Concomitant]
     Indication: ANXIETY
     Dosage: 1.5 MG, AS NEEDED
     Route: 048
  7. TERBASMIN [Concomitant]

REACTIONS (1)
  - ANXIETY [None]
